FAERS Safety Report 13994863 (Version 2)
Quarter: 2018Q1

REPORT INFORMATION
  Report Type: Spontaneous
  Country: JP (occurrence: JP)
  Receive Date: 20170921
  Receipt Date: 20180209
  Transmission Date: 20180508
  Serious: Yes (Death, Other)
  Sender: FDA-Public Use
  Company Number: JP-TAKEDA-2017TJP019744

PATIENT
  Age: 69 Year
  Sex: Female
  Weight: 38.5 kg

DRUGS (37)
  1. PREDNISOLONE TABLETS 5MG. [Suspect]
     Active Substance: PREDNISOLONE
     Dosage: 40 MG, QD
     Route: 048
     Dates: start: 20141213, end: 20141215
  2. TRAMCET [Suspect]
     Active Substance: ACETAMINOPHEN\TRAMADOL
     Indication: PRODUCT USED FOR UNKNOWN INDICATION
     Dosage: 1 DF, TID
     Route: 048
  3. RHEUMATREX [Suspect]
     Active Substance: METHOTREXATE SODIUM
     Indication: PRODUCT USED FOR UNKNOWN INDICATION
     Dosage: 2 MG, 2/WEEK
     Route: 048
     Dates: start: 2004, end: 20141118
  4. ACTEMRA [Suspect]
     Active Substance: TOCILIZUMAB
     Indication: PRODUCT USED FOR UNKNOWN INDICATION
     Dosage: 162 MG, 1/WEEK
     Route: 058
     Dates: end: 20141105
  5. FOLIAMIN [Concomitant]
     Active Substance: FOLIC ACID
     Dosage: 5 MG, QD
     Route: 048
  6. FORTEO [Concomitant]
     Active Substance: TERIPARATIDE
     Dosage: 1 DF, QD
     Route: 058
     Dates: end: 20141118
  7. DAIPHEN [Concomitant]
     Active Substance: SULFAMETHOXAZOLE\TRIMETHOPRIM
     Dosage: 1 DF, QD
     Route: 048
     Dates: start: 20141225, end: 20150119
  8. ARGAMATE [Suspect]
     Active Substance: CALCIUM POLYSTYRENE SULFONATE
     Indication: HYPERKALAEMIA
     Dosage: 25 G, BID
     Route: 048
     Dates: start: 20141128, end: 20150119
  9. CALFINA [Concomitant]
     Active Substance: ALFACALCIDOL
     Indication: OSTEOPOROSIS
     Dosage: 0.25 UG, QD
     Route: 048
     Dates: start: 20141225, end: 20150119
  10. PREDNISOLONE TABLETS 5MG. [Suspect]
     Active Substance: PREDNISOLONE
     Dosage: 40 MG, QD
     Route: 048
     Dates: start: 20141219, end: 20141226
  11. PREDNISOLONE TABLETS 5MG. [Suspect]
     Active Substance: PREDNISOLONE
     Dosage: 25 MG, QD
     Route: 048
     Dates: start: 20150113, end: 20150119
  12. DICLOFENAC SODIUM. [Suspect]
     Active Substance: DICLOFENAC SODIUM
     Indication: PYREXIA
     Dosage: 12.5 MG, QD
     Route: 054
     Dates: start: 20141231, end: 20150101
  13. WARFARIN                           /00014803/ [Concomitant]
     Active Substance: WARFARIN
     Indication: VENOUS THROMBOSIS LIMB
     Dosage: UNK UNK, QD
     Route: 048
     Dates: start: 20091208, end: 20141225
  14. NERIPROCT [Concomitant]
     Active Substance: DIFLUCORTOLONE VALERATE\LIDOCAINE
     Indication: HAEMORRHOIDS
     Dosage: 1 G, BID
     Route: 062
     Dates: start: 20150112, end: 20150119
  15. DAIKENCHUTO [Concomitant]
     Active Substance: HERBALS
     Indication: INFECTION PROPHYLAXIS
     Dosage: 2.5 G, TID
     Route: 048
     Dates: start: 20150113, end: 20150119
  16. HUMULIN R [Concomitant]
     Active Substance: INSULIN HUMAN
     Indication: HYPERGLYCAEMIA
     Dosage: UNK
     Route: 058
     Dates: start: 20141211
  17. TAKEPRON INTRAVENOUS 30MG. [Suspect]
     Active Substance: LANSOPRAZOLE
     Indication: PROPHYLAXIS AGAINST GASTROINTESTINAL ULCER
     Dosage: 30 MG, BID
     Route: 042
     Dates: start: 20141210, end: 20141212
  18. PREDNISOLONE TABLETS 5MG. [Suspect]
     Active Substance: PREDNISOLONE
     Dosage: 25 MG, QD
     Route: 048
     Dates: start: 20141128, end: 20141210
  19. NEXIUM [Concomitant]
     Active Substance: ESOMEPRAZOLE MAGNESIUM
     Indication: PROPHYLAXIS AGAINST GASTROINTESTINAL ULCER
     Dosage: 20 MG, QD
     Route: 048
     Dates: start: 20141213, end: 20141215
  20. ANHIBA [Concomitant]
     Active Substance: ACETAMINOPHEN
     Indication: PAIN
     Dosage: 200 MG, QD
     Route: 054
     Dates: start: 20141223, end: 20141223
  21. SENNOSIDE                          /00571902/ [Concomitant]
     Active Substance: SENNOSIDES A AND B
     Indication: CONSTIPATION
     Dosage: 12 MG, QD
     Route: 048
     Dates: start: 20141231, end: 20141231
  22. MAGMITT [Concomitant]
     Active Substance: MAGNESIUM OXIDE
     Indication: CONSTIPATION
     Dosage: 500 MG, TID
     Route: 048
     Dates: start: 20150107, end: 20150117
  23. PREDNISOLONE TABLETS 5MG. [Suspect]
     Active Substance: PREDNISOLONE
     Indication: INTERSTITIAL LUNG DISEASE
     Dosage: 30 MG, QD
     Route: 048
     Dates: start: 20141118, end: 20141127
  24. PREDNISOLONE TABLETS 5MG. [Suspect]
     Active Substance: PREDNISOLONE
     Dosage: 35 MG, QD
     Route: 048
     Dates: start: 20141227, end: 20150105
  25. VOLTAREN [Suspect]
     Active Substance: DICLOFENAC SODIUM
     Indication: PRODUCT USED FOR UNKNOWN INDICATION
     Dosage: 25 MG, UNK
     Route: 054
  26. ANHIBA [Concomitant]
     Active Substance: ACETAMINOPHEN
     Indication: PYREXIA
  27. NEW LECICARBON [Concomitant]
     Active Substance: SODIUM BICARBONATE\SODIUM PHOSPHATE, MONOBASIC
     Indication: CONSTIPATION
     Dosage: 1 DF, QD
     Route: 054
     Dates: start: 20141226, end: 20141226
  28. SAMTIREL [Concomitant]
     Active Substance: ATOVAQUONE
     Indication: PSEUDOMEMBRANOUS COLITIS
     Dosage: 1500 MG, QD
     Route: 048
     Dates: start: 20150113, end: 20150119
  29. TAKEPRON OD TABLETS 15 [Suspect]
     Active Substance: LANSOPRAZOLE
     Indication: PROPHYLAXIS AGAINST GASTROINTESTINAL ULCER
     Dosage: 15 MG, QD
     Route: 048
     Dates: end: 20141210
  30. PREDNISOLONE TABLETS 5MG. [Suspect]
     Active Substance: PREDNISOLONE
     Dosage: 30 MG, QD
     Route: 048
     Dates: start: 20150106, end: 20150112
  31. DICLOFENAC SODIUM. [Suspect]
     Active Substance: DICLOFENAC SODIUM
     Indication: PAIN
     Dosage: 25 MG, BID
     Route: 054
  32. DICLOFENAC SODIUM. [Suspect]
     Active Substance: DICLOFENAC SODIUM
     Dosage: 25 MG, BID
     Route: 054
     Dates: start: 201501, end: 20150119
  33. PREDNISOLONE. [Suspect]
     Active Substance: PREDNISOLONE
     Indication: PRODUCT USED FOR UNKNOWN INDICATION
     Dosage: 3 MG, QD
     Route: 048
  34. TAKEPRON OD TABLETS 15 [Suspect]
     Active Substance: LANSOPRAZOLE
     Dosage: 15 MG, QD
     Route: 048
     Dates: start: 20141219, end: 20150119
  35. TAKEPRON INTRAVENOUS 30MG. [Suspect]
     Active Substance: LANSOPRAZOLE
     Dosage: 30 MG, BID
     Route: 042
     Dates: start: 20141216, end: 20141218
  36. DAIPHEN [Concomitant]
     Active Substance: SULFAMETHOXAZOLE\TRIMETHOPRIM
     Indication: INFECTION PROPHYLAXIS
     Dosage: 1 DF, QD
     Route: 048
     Dates: start: 20141118, end: 20141128
  37. LIXIANA [Concomitant]
     Active Substance: EDOXABAN TOSYLATE
     Indication: VENOUS THROMBOSIS LIMB
     Dosage: 30 MG, QD
     Route: 048
     Dates: start: 20141226, end: 20150119

REACTIONS (4)
  - Septic shock [Fatal]
  - Large intestine perforation [Fatal]
  - Rectal ulcer [Fatal]
  - Interstitial lung disease [Fatal]

NARRATIVE: CASE EVENT DATE: 20141118
